FAERS Safety Report 13665377 (Version 3)
Quarter: 2017Q4

REPORT INFORMATION
  Report Type: Spontaneous
  Country: DE (occurrence: DE)
  Receive Date: 20170619
  Receipt Date: 20171024
  Transmission Date: 20180320
  Serious: Yes (Other)
  Sender: FDA-Public Use
  Company Number: DE-BAYER-2017-112812

PATIENT
  Age: 31 Year
  Sex: Female
  Weight: 68 kg

DRUGS (3)
  1. KEPPRA [Concomitant]
     Active Substance: LEVETIRACETAM
     Dosage: 1 DF, BID
  2. EUTHYROX [Concomitant]
     Active Substance: LEVOTHYROXINE SODIUM
     Dosage: 1 DF, QD
  3. MIRENA [Suspect]
     Active Substance: LEVONORGESTREL
     Indication: CONTRACEPTION
     Dosage: 20 MCG/24HR, CONT
     Route: 015
     Dates: start: 201608, end: 201701

REACTIONS (58)
  - Irritability [Recovered/Resolved]
  - Vulvovaginal dryness [Recovered/Resolved]
  - Sleep disorder [Recovered/Resolved]
  - Insomnia [Recovered/Resolved]
  - Flatulence [Recovered/Resolved]
  - Hyperhidrosis [Recovered/Resolved]
  - Nervousness [Recovered/Resolved]
  - Stress [Recovered/Resolved]
  - Aphasia [Recovered/Resolved]
  - Impaired reasoning [Recovered/Resolved]
  - Depression [Recovered/Resolved]
  - Headache [Recovered/Resolved]
  - Abdominal pain [Recovered/Resolved]
  - Gastrointestinal disorder [Recovered/Resolved]
  - Dyspnoea [Recovered/Resolved]
  - Acne [Recovered/Resolved]
  - Restlessness [Recovered/Resolved]
  - Migraine [Recovered/Resolved]
  - Tremor [Recovered/Resolved]
  - Emotional disorder [Recovered/Resolved]
  - Disturbance in attention [Recovered/Resolved]
  - Weight loss poor [Recovered/Resolved]
  - Weight increased [Recovered/Resolved]
  - Restless legs syndrome [Recovered/Resolved]
  - Back pain [Recovered/Resolved]
  - Vaginal haemorrhage [Recovered/Resolved]
  - Smear cervix abnormal [Recovered/Resolved]
  - Eczema [Recovered/Resolved]
  - Pruritus [Recovered/Resolved]
  - Palpitations [Recovered/Resolved]
  - Dizziness [Recovered/Resolved]
  - Social anxiety disorder [Recovered/Resolved]
  - Memory impairment [Recovered/Resolved]
  - Food intolerance [Recovered/Resolved]
  - Seborrhoea [Recovered/Resolved]
  - Hyperacusis [Recovered/Resolved]
  - Asthenia [Recovered/Resolved]
  - Dysmenorrhoea [Recovered/Resolved]
  - Vaginal discharge [Recovered/Resolved]
  - Nasal congestion [Recovered/Resolved]
  - Parosmia [Recovered/Resolved]
  - Suicidal ideation [Recovered/Resolved]
  - Menorrhagia [Recovered/Resolved]
  - Menstruation irregular [Recovered/Resolved]
  - Pelvic pain [Recovered/Resolved]
  - Dry skin [Recovered/Resolved]
  - Skin exfoliation [Recovered/Resolved]
  - Fatigue [Recovered/Resolved]
  - Visual impairment [Recovered/Resolved]
  - Blepharospasm [Recovered/Resolved]
  - Skin odour abnormal [Recovered/Resolved]
  - Aggression [Recovered/Resolved]
  - Tearfulness [Recovered/Resolved]
  - Arthralgia [Recovered/Resolved]
  - Hypoaesthesia [Recovered/Resolved]
  - Loss of libido [Recovered/Resolved]
  - Panic attack [Recovered/Resolved]
  - Confusional state [Recovered/Resolved]

NARRATIVE: CASE EVENT DATE: 20160730
